FAERS Safety Report 21463413 (Version 3)
Quarter: 2022Q4

REPORT INFORMATION
  Report Type: Spontaneous
  Country: DE (occurrence: DE)
  Receive Date: 20221017
  Receipt Date: 20221130
  Transmission Date: 20230113
  Serious: Yes (Other)
  Sender: FDA-Public Use
  Company Number: DE-NOVARTISPH-NVSC2022DE232254

PATIENT
  Age: 82 Year
  Sex: Female

DRUGS (3)
  1. BISOPROLOL FUMARATE [Suspect]
     Active Substance: BISOPROLOL FUMARATE
     Indication: Arrhythmia
     Dosage: UNK, QD (IN THE MORNING)
     Route: 065
  2. BISOPROLOL FUMARATE [Suspect]
     Active Substance: BISOPROLOL FUMARATE
     Indication: Atrial fibrillation
     Dosage: 0.5 DOSAGE FORM, QD (SPLIT THE TABLETS IN HALF, IN THE MORNING)
     Route: 065
  3. BISOPROLOL FUMARATE [Suspect]
     Active Substance: BISOPROLOL FUMARATE
     Dosage: UNK, QD (IN THE MORNING)
     Route: 065

REACTIONS (14)
  - Polyneuropathy [Recovered/Resolved]
  - Hypoaesthesia [Unknown]
  - Autoimmune disorder [Unknown]
  - Sjogren^s syndrome [Recovered/Resolved]
  - Systemic lupus erythematosus [Recovered/Resolved]
  - Heart rate decreased [Recovering/Resolving]
  - Blood pressure decreased [Recovering/Resolving]
  - Sleep disorder [Unknown]
  - Visual impairment [Unknown]
  - Connective tissue disorder [Recovered/Resolved]
  - Chronic obstructive pulmonary disease [Recovered/Resolved]
  - Renal disorder [Recovered/Resolved]
  - Blood pressure increased [Not Recovered/Not Resolved]
  - Product physical issue [Not Recovered/Not Resolved]
